FAERS Safety Report 7128110-9 (Version None)
Quarter: 2010Q4

REPORT INFORMATION
  Report Type: 
  Country: None (occurrence: None)
  Receive Date: 20101130
  Receipt Date: 20101125
  Transmission Date: 20110411
  Serious: Yes (Disabling)
  Sender: FDA-Public Use
  Company Number: FR-BRISTOL-MYERS SQUIBB COMPANY-15407208

PATIENT
  Age: 52 Year
  Sex: Male

DRUGS (2)
  1. ELISOR TABS 20 MG [Suspect]
     Route: 048
     Dates: start: 19950101, end: 20101001
  2. LUDIOMIL [Concomitant]

REACTIONS (1)
  - TENDON RUPTURE [None]
